FAERS Safety Report 4672377-3 (Version None)
Quarter: 2005Q2

REPORT INFORMATION
  Report Type: 
  Country: None (occurrence: None)
  Receive Date: 20050520
  Receipt Date: 20050406
  Transmission Date: 20051028
  Serious: Yes (Other)
  Sender: FDA-Public Use
  Company Number: HQWYE364116FEB05

PATIENT
  Age: 19 Year
  Sex: Male

DRUGS (4)
  1. MINOCIN [Suspect]
     Indication: ACNE
     Dosage: 100 MG 1 X PER 1 DAY, ORAL
     Route: 048
     Dates: start: 19981030, end: 19990126
  2. EPILIM (VALPROATE SODIUM, ) [Suspect]
     Indication: EPILEPSY
     Dosage: SEE IMAGE
     Dates: start: 19970901, end: 19981028
  3. EPILIM (VALPROATE SODIUM, ) [Suspect]
     Indication: EPILEPSY
     Dosage: SEE IMAGE
     Dates: start: 19981028, end: 19981215
  4. EPILIM (VALPROATE SODIUM, ) [Suspect]
     Indication: EPILEPSY
     Dosage: SEE IMAGE
     Dates: start: 19981215

REACTIONS (4)
  - CONDITION AGGRAVATED [None]
  - DRUG INTERACTION [None]
  - EPILEPSY [None]
  - MOOD ALTERED [None]
